FAERS Safety Report 21009604 (Version 1)
Quarter: 2022Q2

REPORT INFORMATION
  Report Type: Spontaneous
  Country: JP (occurrence: JP)
  Receive Date: 20220627
  Receipt Date: 20220627
  Transmission Date: 20220721
  Serious: Yes (Other)
  Sender: FDA-Public Use
  Company Number: JP-MEDEXUS PHARMA, INC.-2022MED00274

PATIENT
  Age: 43 Year
  Sex: Female
  Weight: 49.7 kg

DRUGS (2)
  1. METHOTREXATE [Suspect]
     Active Substance: METHOTREXATE
     Indication: Rheumatoid arthritis
     Dosage: 8 MG, 1X/WEEK
     Route: 065
  2. INFLIXIMAB [Suspect]
     Active Substance: INFLIXIMAB
     Indication: Rheumatoid arthritis
     Dosage: 150 MG/DAY EVERY 8 WEEKS
     Route: 065

REACTIONS (2)
  - Glomerulonephritis [Recovered/Resolved]
  - Henoch-Schonlein purpura [Recovered/Resolved]
